FAERS Safety Report 14632001 (Version 3)
Quarter: 2018Q2

REPORT INFORMATION
  Report Type: Report from Study
  Country: CA (occurrence: CA)
  Receive Date: 20180313
  Receipt Date: 20180503
  Transmission Date: 20180711
  Serious: Yes (Life-Threatening, Hospitalization, Other)
  Sender: FDA-Public Use
  Company Number: PHHO2018CA003489

PATIENT
  Age: 66 Year
  Sex: Male
  Weight: 111.6 kg

DRUGS (8)
  1. LORAZEPAM. [Concomitant]
     Active Substance: LORAZEPAM
     Indication: ANXIETY
     Dosage: 1 MG, PRN
     Route: 048
     Dates: start: 20100717
  2. PLACEBO [Suspect]
     Active Substance: UNSPECIFIED INGREDIENT
     Indication: CARDIOVASCULAR EVENT PROPHYLAXIS
     Dosage: UNK
     Route: 058
     Dates: end: 20170803
  3. RAMIPRIL. [Concomitant]
     Active Substance: RAMIPRIL
     Indication: MYOCARDIAL ISCHAEMIA
     Dosage: 5 MG, QD
     Route: 048
     Dates: start: 20090622
  4. ROSUVASTATIN. [Concomitant]
     Active Substance: ROSUVASTATIN
     Indication: BLOOD CHOLESTEROL INCREASED
     Dosage: 20 MG, QD
     Route: 048
     Dates: start: 20130104
  5. ASA [Concomitant]
     Active Substance: ASPIRIN
     Indication: CARDIOVASCULAR EVENT PROPHYLAXIS
     Dosage: 8 MG, QD
     Route: 048
     Dates: start: 20090428
  6. ACZ885 [Suspect]
     Active Substance: CANAKINUMAB
     Indication: CARDIOVASCULAR EVENT PROPHYLAXIS
     Dosage: 150 MG/ML (1 INJECTION)
     Route: 058
     Dates: start: 20171006
  7. METOPROLOL. [Concomitant]
     Active Substance: METOPROLOL
     Indication: MYOCARDIAL ISCHAEMIA
     Dosage: 25 MG, BID
     Route: 048
     Dates: start: 20090428
  8. CIPRALEX [Concomitant]
     Active Substance: ESCITALOPRAM OXALATE
     Indication: DEPRESSION
     Dosage: 30 MG, QD
     Route: 048
     Dates: start: 20101015

REACTIONS (5)
  - Atrial fibrillation [Not Recovered/Not Resolved]
  - Chronic obstructive pulmonary disease [Unknown]
  - Staphylococcal infection [Unknown]
  - Pneumonitis [Recovering/Resolving]
  - Respiratory distress [Recovering/Resolving]

NARRATIVE: CASE EVENT DATE: 20180212
